FAERS Safety Report 10447048 (Version 3)
Quarter: 2014Q4

REPORT INFORMATION
  Report Type: Spontaneous
  Country: JP (occurrence: JP)
  Receive Date: 20140911
  Receipt Date: 20141229
  Transmission Date: 20150528
  Serious: Yes (Hospitalization)
  Sender: FDA-Public Use
  Company Number: JP-SA-2014SA120943

PATIENT
  Age: 69 Year
  Sex: Female

DRUGS (1)
  1. DOCETAXEL. [Suspect]
     Active Substance: DOCETAXEL
     Dosage: 60 MG/BODY
     Route: 065

REACTIONS (7)
  - Dyspnoea [Unknown]
  - Stress cardiomyopathy [Unknown]
  - Wheezing [Unknown]
  - Anaphylactic reaction [Unknown]
  - Erythema [Unknown]
  - Electrocardiogram ST segment elevation [Unknown]
  - Chest discomfort [Unknown]
